FAERS Safety Report 7618303-6 (Version None)
Quarter: 2011Q3

REPORT INFORMATION
  Report Type: 
  Country: None (occurrence: None)
  Receive Date: 20110718
  Receipt Date: 20110530
  Transmission Date: 20111222
  Serious: Yes (Death, Hospitalization)
  Sender: FDA-Public Use
  Company Number: ES-ROCHE-780807

PATIENT
  Age: 3 Year
  Sex: Male

DRUGS (2)
  1. OSELTAMIVIR [Suspect]
     Route: 065
  2. OSELTAMIVIR [Suspect]
     Indication: H1N1 INFLUENZA
     Dosage: PREVIOUS TREATMENT
     Route: 065

REACTIONS (2)
  - PATHOGEN RESISTANCE [None]
  - DRUG INEFFECTIVE [None]
